FAERS Safety Report 19026255 (Version 1)
Quarter: 2021Q1

REPORT INFORMATION
  Report Type: Spontaneous
  Country: GB (occurrence: GB)
  Receive Date: 20210318
  Receipt Date: 20210318
  Transmission Date: 20210420
  Serious: Yes (Other)
  Sender: FDA-Public Use
  Company Number: GB-ALKEM LABORATORIES LIMITED-GB-ALKEM-2021-01218

PATIENT

DRUGS (5)
  1. GLUCOSAMINE [Concomitant]
     Active Substance: GLUCOSAMINE
     Indication: PRODUCT USED FOR UNKNOWN INDICATION
     Dosage: UNK
     Route: 065
  2. ESTRADIOL. [Concomitant]
     Active Substance: ESTRADIOL
     Indication: PRODUCT USED FOR UNKNOWN INDICATION
     Dosage: UNK
     Route: 065
  3. ACCORD?UK TETRACYCLINE [Suspect]
     Active Substance: TETRACYCLINE HYDROCHLORIDE
     Indication: BONE FRAGMENTATION
     Dosage: 500MG 4 TIMES A DAY...1 WEEK CEFALEXIN AND 4 WEEKS TETRACYCLINE
     Route: 048
     Dates: start: 20201010, end: 20201113
  4. CEPHALEXIN. [Suspect]
     Active Substance: CEPHALEXIN
     Indication: BONE FRAGMENTATION
     Dosage: 500 MILLIGRAM
     Route: 065
  5. NORETHISTERONE [Concomitant]
     Active Substance: NORETHINDRONE
     Indication: PRODUCT USED FOR UNKNOWN INDICATION
     Dosage: UNK
     Route: 065

REACTIONS (4)
  - Chest pain [Recovered/Resolved]
  - Gastrooesophageal reflux disease [Recovered/Resolved]
  - Vertigo positional [Recovered/Resolved]
  - Cough [Recovered/Resolved]

NARRATIVE: CASE EVENT DATE: 20201031
